FAERS Safety Report 9248095 (Version 1)
Quarter: 2013Q2

REPORT INFORMATION
  Report Type: Spontaneous
  Country: US (occurrence: US)
  Receive Date: 20130423
  Receipt Date: 20130423
  Transmission Date: 20140414
  Serious: No
  Sender: FDA-Public Use
  Company Number: US-B.I. PHARMACEUTICALS,INC./RIDGEFIELD-2013-BI-10200BP

PATIENT
  Sex: Female

DRUGS (3)
  1. SPIRIVA [Suspect]
     Indication: PULMONARY HYPERTENSION
     Dosage: 18 MCG
     Route: 055
     Dates: start: 2009
  2. SPIRIVA [Suspect]
     Route: 048
     Dates: start: 20130410, end: 20130410
  3. ADVAIR [Concomitant]
     Indication: PULMONARY HYPERTENSION
     Dosage: 500 MCG
     Route: 055
     Dates: start: 2009

REACTIONS (2)
  - Incorrect route of drug administration [Recovered/Resolved]
  - Presbyopia [Not Recovered/Not Resolved]
